FAERS Safety Report 7435789-0 (Version None)
Quarter: 2011Q2

REPORT INFORMATION
  Report Type: 
  Country: None (occurrence: None)
  Receive Date: 20110418
  Receipt Date: 20110401
  Transmission Date: 20111010
  Serious: Yes (Other)
  Sender: FDA-Public Use
  Company Number: AE 2011-157

PATIENT
  Age: 45 Year
  Sex: Male

DRUGS (1)
  1. CLOZAPINE [Suspect]

REACTIONS (6)
  - ABDOMINAL DISTENSION [None]
  - MEGACOLON [None]
  - VOMITING [None]
  - FAECALOMA [None]
  - PYREXIA [None]
  - CONSTIPATION [None]
